FAERS Safety Report 11667633 (Version 2)
Quarter: 2015Q4

REPORT INFORMATION
  Report Type: Report from Study
  Country: US (occurrence: US)
  Receive Date: 20151027
  Receipt Date: 20151119
  Transmission Date: 20160304
  Serious: Yes (Hospitalization, Other)
  Sender: FDA-Public Use
  Company Number: US-ASTELLAS-2015US003106

PATIENT
  Age: 79 Year
  Sex: Female

DRUGS (1)
  1. ERLOTINIB [Suspect]
     Active Substance: ERLOTINIB
     Indication: LUNG NEOPLASM MALIGNANT
     Route: 065

REACTIONS (7)
  - Nephrolithiasis [Not Recovered/Not Resolved]
  - Flatulence [Not Recovered/Not Resolved]
  - Fall [Unknown]
  - Depression [Unknown]
  - Drug dose omission [Unknown]
  - Lower limb fracture [Unknown]
  - Wrist fracture [Unknown]

NARRATIVE: CASE EVENT DATE: 20150119
